FAERS Safety Report 5090244-0 (Version None)
Quarter: 2006Q3

REPORT INFORMATION
  Report Type: 
  Country: None (occurrence: None)
  Receive Date: 20060828
  Receipt Date: 20060626
  Transmission Date: 20061208
  Serious: No
  Sender: FDA-Public Use
  Company Number: US-GLAXOSMITHKLINE-A0610314A

PATIENT
  Age: 71 Year
  Sex: Male

DRUGS (6)
  1. WELLBUTRIN XL [Suspect]
     Indication: DEPRESSION
     Dosage: 300MG PER DAY
     Route: 048
  2. SINEMET [Concomitant]
  3. XANAX [Concomitant]
  4. REQUIP [Concomitant]
  5. DOCUSATE [Concomitant]
  6. ANTI-HYPERTENSIVE [Concomitant]

REACTIONS (3)
  - DYSSTASIA [None]
  - GAIT DISTURBANCE [None]
  - MUSCULAR WEAKNESS [None]
